FAERS Safety Report 22272409 (Version 2)
Quarter: 2023Q4

REPORT INFORMATION
  Report Type: Other
  Country: AE (occurrence: None)
  Receive Date: 20230502
  Receipt Date: 20231030
  Transmission Date: 20240110
  Serious: Yes (Other)
  Sender: FDA-Public Use
  Company Number: AE-ROCHE-3338993

PATIENT
  Sex: Female

DRUGS (1)
  1. EVRYSDI [Suspect]
     Active Substance: RISDIPLAM
     Indication: Spinal muscular atrophy
     Route: 048
     Dates: start: 20220331

REACTIONS (7)
  - Neuromyopathy [Unknown]
  - Chronic respiratory failure [Unknown]
  - Hypoxia [Unknown]
  - Scoliosis [Unknown]
  - Asthenia [Unknown]
  - Infection susceptibility increased [Unknown]
  - Respiratory disorder [Unknown]
